FAERS Safety Report 12174516 (Version 1)
Quarter: 2016Q1

REPORT INFORMATION
  Report Type: Spontaneous
  Country: US (occurrence: US)
  Receive Date: 20160312
  Receipt Date: 20160312
  Transmission Date: 20160526
  Serious: Yes (Hospitalization)
  Sender: FDA-Public Use
  Company Number: US-AUROBINDO-AUR-APL-2016-03164

PATIENT

DRUGS (5)
  1. AMIKACIN [Suspect]
     Active Substance: AMIKACIN
     Indication: PRODUCT USED FOR UNKNOWN INDICATION
     Dosage: 5 TIMES WEEKLY FOR SIX WEEKS
     Route: 042
  2. DOXYCYCLINE                        /00055702/ [Suspect]
     Active Substance: DOXYCYCLINE
     Indication: PRODUCT USED FOR UNKNOWN INDICATION
  3. METHYLPREDNISOLONE. [Interacting]
     Active Substance: METHYLPREDNISOLONE
     Indication: PRODUCT USED FOR UNKNOWN INDICATION
  4. CLARITHROMYCIN. [Suspect]
     Active Substance: CLARITHROMYCIN
     Indication: PRODUCT USED FOR UNKNOWN INDICATION
     Route: 065
  5. RIFAMPICIN [Interacting]
     Active Substance: RIFAMPIN
     Indication: PRODUCT USED FOR UNKNOWN INDICATION

REACTIONS (6)
  - Vomiting [Unknown]
  - Adrenocortical insufficiency acute [Unknown]
  - Systemic lupus erythematosus [Unknown]
  - Drug interaction [Unknown]
  - Ototoxicity [Unknown]
  - Nausea [Unknown]
